FAERS Safety Report 15374336 (Version 3)
Quarter: 2023Q2

REPORT INFORMATION
  Report Type: Other
  Country: HU (occurrence: HU)
  Receive Date: 20180912
  Receipt Date: 20230530
  Transmission Date: 20230721
  Serious: Yes (Other)
  Sender: FDA-Public Use
  Company Number: HU-MACLEODS PHARMACEUTICALS US LTD-MAC2018016539

PATIENT

DRUGS (24)
  1. PANTOPRAZOLE [Suspect]
     Active Substance: PANTOPRAZOLE
     Indication: Premedication
     Dosage: 40 MILLIGRAM
     Route: 042
  2. PANTOPRAZOLE [Suspect]
     Active Substance: PANTOPRAZOLE
     Indication: Surgery
     Dosage: 40 MILLIGRAM
     Route: 048
  3. METOPROLOL [Suspect]
     Active Substance: METOPROLOL
     Indication: Sinus tachycardia
     Dosage: UNK
     Route: 065
  4. AMPICILLIN SODIUM [Suspect]
     Active Substance: AMPICILLIN SODIUM
     Indication: Product used for unknown indication
     Dosage: 1 UNK, 1 {TRIMESTER}, 2G PER 4 HOUR
     Route: 065
  5. DIGOXIN [Suspect]
     Active Substance: DIGOXIN
     Indication: Product used for unknown indication
     Dosage: UNK(1 TRIMESTER)
     Route: 065
  6. ENOXAPARIN SODIUM [Suspect]
     Active Substance: ENOXAPARIN SODIUM
     Indication: Product used for unknown indication
     Dosage: UNK
     Route: 065
  7. EPHEDRINE [Suspect]
     Active Substance: EPHEDRINE
     Indication: Blood pressure management
     Dosage: 5 MILLIGRAM, 11 TIMES
     Route: 040
  8. EPHEDRINE [Suspect]
     Active Substance: EPHEDRINE
     Dosage: 25 MG/H
     Route: 042
  9. EPHEDRINE [Suspect]
     Active Substance: EPHEDRINE
     Dosage: 5 MILLIGRAM, 3 TIMES
     Route: 042
  10. HEPARIN SODIUM [Suspect]
     Active Substance: HEPARIN SODIUM
     Indication: Product used for unknown indication
     Dosage: 20 INTERNATIONAL UNIT
     Route: 065
  11. HEPARIN SODIUM [Suspect]
     Active Substance: HEPARIN SODIUM
     Dosage: 10 INTERNATIONAL UNIT
     Route: 065
  12. HEPARIN SODIUM [Suspect]
     Active Substance: HEPARIN SODIUM
     Dosage: 10000 INTERNATIONAL UNIT
     Route: 065
  13. HEPARIN SODIUM [Suspect]
     Active Substance: HEPARIN SODIUM
     Dosage: 20000 INTERNATIONAL UNIT
     Route: 065
  14. ISOFLURANE [Suspect]
     Active Substance: ISOFLURANE
     Indication: Anaesthesia
     Dosage: UNK, 0.5-1.0 %(INHALATION VAPOUR)
  15. MIDAZOLAM [Suspect]
     Active Substance: MIDAZOLAM
     Indication: Surgery
     Dosage: 7.5 MILLIGRAM, OFF LABEL USE
     Route: 048
  16. MIDAZOLAM [Suspect]
     Active Substance: MIDAZOLAM
     Dosage: 5 MILLIGRAM, OFF LABEL USE
     Route: 065
  17. MIDAZOLAM [Suspect]
     Active Substance: MIDAZOLAM
     Dosage: 2 MG OF 2 UG/ML, OFF LABEL USE
     Route: 048
  18. PENAMECILLIN [Suspect]
     Active Substance: PENAMECILLIN
     Indication: Alpha haemolytic streptococcal infection
     Dosage: UNK
     Route: 065
  19. PIPECURONIUM [Suspect]
     Active Substance: PIPECURONIUM
     Indication: Induction of anaesthesia
     Dosage: UNK, 4 MILLIGRAM
     Route: 040
  20. PROPOFOL [Suspect]
     Active Substance: PROPOFOL
     Indication: Product used for unknown indication
     Dosage: 2 DOSAGE FORM OF 2 UG/ML
     Route: 065
  21. PROPOFOL [Suspect]
     Active Substance: PROPOFOL
     Dosage: UNK(2-1.5 UG/ML)
     Route: 042
  22. PROTAMINE SULFATE [Suspect]
     Active Substance: PROTAMINE SULFATE
     Indication: Product used for unknown indication
     Dosage: 200 MILLIGRAM
     Route: 065
  23. SEVOFLURANE [Suspect]
     Active Substance: SEVOFLURANE
     Indication: Product used for unknown indication
     Dosage: UNK, 1.5-2.0 %(INHALATION VAPOUR)
  24. SUFENTANIL [Suspect]
     Active Substance: SUFENTANIL
     Indication: Induction of anaesthesia
     Dosage: 10 MICROGRAM
     Route: 065

REACTIONS (16)
  - Cardiac failure [Unknown]
  - Ejection fraction decreased [Recovered/Resolved]
  - Hypervolaemia [Unknown]
  - Cardiac valve abscess [Unknown]
  - Cardiac valve vegetation [Unknown]
  - Sinus tachycardia [Unknown]
  - Alpha haemolytic streptococcal infection [Unknown]
  - Hypokinesia [Unknown]
  - Hyperthyroidism [Unknown]
  - Orthopnoea [Unknown]
  - Thyroid cyst [Unknown]
  - Maternal exposure during pregnancy [Unknown]
  - Anaemia [Unknown]
  - Product use in unapproved indication [Unknown]
  - Exposure during pregnancy [Unknown]
  - Dyspnoea [Unknown]
